FAERS Safety Report 11309298 (Version 1)
Quarter: 2015Q3

REPORT INFORMATION
  Report Type: Spontaneous
  Country: US (occurrence: US)
  Receive Date: 20150724
  Receipt Date: 20150724
  Transmission Date: 20151125
  Serious: No
  Sender: FDA-Public Use
  Company Number: US-ELI_LILLY_AND_COMPANY-US201506009863

PATIENT
  Age: 60 Year
  Sex: Male
  Weight: 92.06 kg

DRUGS (18)
  1. LIDODERM [Concomitant]
     Active Substance: LIDOCAINE
     Dosage: 1 DF, BID
     Route: 065
  2. ATORVASTATIN CALCIUM. [Concomitant]
     Active Substance: ATORVASTATIN CALCIUM
     Dosage: 40 MG, UNKNOWN
     Route: 048
  3. DULOXETINE HYDROCHLORIDE. [Suspect]
     Active Substance: DULOXETINE HYDROCHLORIDE
     Indication: PRODUCT USED FOR UNKNOWN INDICATION
     Dosage: 60 MG, UNKNOWN
     Route: 048
  4. ISOSORBIDE DINITRATE. [Concomitant]
     Active Substance: ISOSORBIDE DINITRATE
     Dosage: 30 MG, UNKNOWN
     Route: 048
  5. BACLOFEN. [Concomitant]
     Active Substance: BACLOFEN
     Dosage: 20 MG, TID
     Route: 048
  6. BENAZEPRIL HCL [Concomitant]
     Active Substance: BENAZEPRIL HYDROCHLORIDE
     Dosage: 20 MG, UNKNOWN
     Route: 048
  7. MYCOPHENOLATE [Concomitant]
     Active Substance: MYCOPHENOLIC ACID
     Dosage: 500 MG, UNKNOWN
     Route: 042
  8. CYMBALTA [Suspect]
     Active Substance: DULOXETINE HYDROCHLORIDE
     Indication: PRODUCT USED FOR UNKNOWN INDICATION
     Dosage: 60 MG, QD
     Route: 048
  9. VESICARE [Concomitant]
     Active Substance: SOLIFENACIN SUCCINATE
     Dosage: 10 MG, UNKNOWN
     Route: 065
  10. TRAMADOL. [Concomitant]
     Active Substance: TRAMADOL
     Dosage: 100 MG, TID
     Route: 048
  11. POTASSIUM CHLORIDE. [Concomitant]
     Active Substance: POTASSIUM CHLORIDE
     Dosage: UNK, UNKNOWN
     Route: 048
  12. LYRICA [Concomitant]
     Active Substance: PREGABALIN
     Dosage: 150 MG, QID
     Route: 048
  13. OMEPRAZOLE. [Concomitant]
     Active Substance: OMEPRAZOLE
     Dosage: 20 MG, UNKNOWN
     Route: 048
  14. RANEXA [Concomitant]
     Active Substance: RANOLAZINE
     Dosage: 1000 MG, BID
     Route: 048
  15. AMLODIPINE [Concomitant]
     Active Substance: AMLODIPINE BESYLATE
     Dosage: UNK UNK, UNKNOWN
     Route: 048
  16. CEPHALEXIN                         /00145501/ [Concomitant]
     Active Substance: CEPHALEXIN
     Dosage: 250 MG, UNKNOWN
     Route: 048
  17. PHENAZOPYRIDINE. [Concomitant]
     Active Substance: PHENAZOPYRIDINE
     Dosage: 200 MG, UNKNOWN
     Route: 048
  18. FUROSEMIDE. [Concomitant]
     Active Substance: FUROSEMIDE
     Dosage: 10 MG, UNKNOWN
     Route: 048

REACTIONS (5)
  - Pain [Unknown]
  - Sedation [Unknown]
  - Constipation [Unknown]
  - Abdominal discomfort [Unknown]
  - Fatigue [Unknown]

NARRATIVE: CASE EVENT DATE: 20150710
